FAERS Safety Report 16046607 (Version 2)
Quarter: 2019Q1

REPORT INFORMATION
  Report Type: Spontaneous
  Country: US (occurrence: US)
  Receive Date: 20190307
  Receipt Date: 20190316
  Transmission Date: 20190418
  Serious: Yes (Other)
  Sender: FDA-Public Use
  Company Number: US-TEVA-2019-US-1019680

PATIENT
  Age: 13 Year
  Sex: Male

DRUGS (4)
  1. TRIMETHOPRIM-SULFAMETHOXAZOLE [Concomitant]
     Active Substance: SULFAMETHOXAZOLE\TRIMETHOPRIM
     Indication: ANTIFUNGAL PROPHYLAXIS
     Route: 065
  2. DOXORUBICIN [Suspect]
     Active Substance: DOXORUBICIN
     Indication: OSTEOSARCOMA
     Route: 065
  3. CARBOPLATIN. [Suspect]
     Active Substance: CARBOPLATIN
     Indication: OSTEOSARCOMA
     Dosage: ONE DOSE OF CARBOPLATIN.
     Route: 050
  4. IFOSFAMIDE. [Suspect]
     Active Substance: IFOSFAMIDE
     Indication: OSTEOSARCOMA
     Dosage: INFUSION
     Route: 050

REACTIONS (1)
  - Acute kidney injury [Recovered/Resolved]
